FAERS Safety Report 21437036 (Version 4)
Quarter: 2025Q3

REPORT INFORMATION
  Report Type: Spontaneous
  Country: KR (occurrence: KR)
  Receive Date: 20221010
  Receipt Date: 20250710
  Transmission Date: 20251020
  Serious: Yes (Other)
  Sender: JAZZ
  Company Number: KR-GW PHARMA-2022-KR-031632

PATIENT
  Age: 6 Year
  Sex: Female

DRUGS (3)
  1. CANNABIDIOL [Suspect]
     Active Substance: CANNABIDIOL
     Indication: Lennox-Gastaut syndrome
     Route: 048
     Dates: start: 20220824, end: 20220830
  2. CANNABIDIOL [Suspect]
     Active Substance: CANNABIDIOL
     Route: 048
     Dates: start: 20220824
  3. CLOBAZAM [Concomitant]
     Active Substance: CLOBAZAM
     Indication: Lennox-Gastaut syndrome
     Dates: end: 20220824

REACTIONS (3)
  - Productive cough [Recovered/Resolved]
  - Dysphagia [Recovered/Resolved]
  - Pneumonia [Recovered/Resolved]

NARRATIVE: CASE EVENT DATE: 20220827
